FAERS Safety Report 22651253 (Version 1)
Quarter: 2023Q2

REPORT INFORMATION
  Report Type: Spontaneous
  Country: US (occurrence: US)
  Receive Date: 20230628
  Receipt Date: 20230628
  Transmission Date: 20230721
  Serious: No
  Sender: FDA-Public Use
  Company Number: US-Calliditas-2023CAL00793

PATIENT
  Sex: Female

DRUGS (1)
  1. TARPEYO [Suspect]
     Active Substance: BUDESONIDE
     Indication: IgA nephropathy
     Dosage: 16MG (4 MG CAPSULES) ONCE DAILY
     Route: 048
     Dates: start: 202305

REACTIONS (2)
  - Product residue present [Unknown]
  - Inappropriate schedule of product administration [Unknown]
